FAERS Safety Report 20977877 (Version 1)
Quarter: 2022Q2

REPORT INFORMATION
  Report Type: Spontaneous
  Country: US (occurrence: US)
  Receive Date: 20220618
  Receipt Date: 20220618
  Transmission Date: 20220720
  Serious: Yes (Other)
  Sender: FDA-Public Use
  Company Number: US-SA-2022SA215893

PATIENT
  Age: 48 Year
  Sex: Female

DRUGS (4)
  1. CABOMETYX [Suspect]
     Active Substance: CABOZANTINIB S-MALATE
     Indication: Thyroid cancer
     Dosage: 40 MG, QD
     Route: 048
     Dates: start: 20220421
  2. CAPRELSA [Suspect]
     Active Substance: VANDETANIB
     Indication: Thyroid cancer
  3. ZOFRAN [Concomitant]
     Active Substance: ONDANSETRON HYDROCHLORIDE
  4. OXYCODONE [Concomitant]
     Active Substance: OXYCODONE

REACTIONS (17)
  - Metastases to lung [Unknown]
  - Gastric ulcer [Unknown]
  - Cognitive disorder [Unknown]
  - Hypophagia [Unknown]
  - Hypersomnia [Unknown]
  - Pain in extremity [Unknown]
  - Gastrointestinal wall thickening [Unknown]
  - Blood calcitonin decreased [Unknown]
  - Fall [Unknown]
  - Balance disorder [Unknown]
  - Hernia [Unknown]
  - Bone pain [Unknown]
  - Constipation [Unknown]
  - Nausea [Unknown]
  - Decreased appetite [Unknown]
  - Fatigue [Unknown]
  - Diarrhoea [Unknown]
